FAERS Safety Report 22195040 (Version 1)
Quarter: 2023Q2

REPORT INFORMATION
  Report Type: Spontaneous
  Country: FR (occurrence: FR)
  Receive Date: 20230411
  Receipt Date: 20230411
  Transmission Date: 20230721
  Serious: Yes (Hospitalization, Other)
  Sender: FDA-Public Use
  Company Number: FR-AFSSAPS-AN2023000463

PATIENT
  Age: 45 Year
  Sex: Male
  Weight: 86 kg

DRUGS (6)
  1. ACETAMINOPHEN [Suspect]
     Active Substance: ACETAMINOPHEN
     Indication: Product used for unknown indication
     Dosage: UNK
     Route: 048
     Dates: start: 20230123, end: 20230203
  2. PROPRANOLOL [Suspect]
     Active Substance: PROPRANOLOL HYDROCHLORIDE
     Indication: Hypertension
     Dosage: UNK
     Route: 048
     Dates: start: 20230130, end: 20230202
  3. MILRINONE [Suspect]
     Active Substance: MILRINONE
     Indication: Product used for unknown indication
     Dosage: UNK
     Route: 051
     Dates: start: 20230127, end: 20230202
  4. NIMODIPINE [Suspect]
     Active Substance: NIMODIPINE
     Indication: Product used for unknown indication
     Dosage: 12 DOSAGE FORM (1 TOTAL)
     Route: 048
     Dates: start: 20230114, end: 20230203
  5. UMULINE [Concomitant]
     Active Substance: INSULIN HUMAN
     Indication: Product used for unknown indication
     Dosage: UNK
     Route: 058
     Dates: start: 20230126
  6. ENOXAPARIN SODIUM [Concomitant]
     Active Substance: ENOXAPARIN SODIUM
     Indication: Product used for unknown indication
     Dosage: UNK
     Route: 051
     Dates: start: 20230113

REACTIONS (1)
  - Agranulocytosis [Recovering/Resolving]

NARRATIVE: CASE EVENT DATE: 20230201
